FAERS Safety Report 23656746 (Version 1)
Quarter: 2024Q1

REPORT INFORMATION
  Report Type: Spontaneous
  Country: US (occurrence: US)
  Receive Date: 20240321
  Receipt Date: 20240321
  Transmission Date: 20240410
  Serious: Yes (Other)
  Sender: FDA-Public Use
  Company Number: US-CIPLA LTD.-2024US02876

PATIENT

DRUGS (2)
  1. METOPROLOL [Suspect]
     Active Substance: METOPROLOL
     Indication: Pulmonary hypertension
     Dosage: 25 MG, DAILY
     Route: 065
  2. FUROSEMIDE [Suspect]
     Active Substance: FUROSEMIDE
     Indication: Pulmonary hypertension
     Dosage: 20 MG, DAILY
     Route: 065

REACTIONS (2)
  - Placenta accreta [Unknown]
  - Exposure during pregnancy [Unknown]
